FAERS Safety Report 7722139-5 (Version None)
Quarter: 2011Q3

REPORT INFORMATION
  Report Type: 
  Country: None (occurrence: None)
  Receive Date: 20110831
  Receipt Date: 20110818
  Transmission Date: 20111222
  Serious: No
  Sender: FDA-Public Use
  Company Number: US-B.I. PHARMACEUTICALS,INC./RIDGEFIELD-2011-BP-20346BP

PATIENT
  Sex: Female

DRUGS (3)
  1. COMBIVENT [Suspect]
  2. DUONEB [Suspect]
  3. SPIRIVA [Suspect]

REACTIONS (1)
  - ANTICHOLINERGIC SYNDROME [None]
